FAERS Safety Report 9270242 (Version 4)
Quarter: 2013Q2

REPORT INFORMATION
  Report Type: Report from Study
  Country: DE (occurrence: DE)
  Receive Date: 20130503
  Receipt Date: 20130611
  Transmission Date: 20140414
  Serious: Yes (Hospitalization)
  Sender: FDA-Public Use
  Company Number: DE-GLAXOSMITHKLINE-B0889342A

PATIENT
  Age: 57 Year
  Sex: Female

DRUGS (2)
  1. PAZOPANIB [Suspect]
     Indication: SARCOMA
     Dosage: 800MG PER DAY
     Route: 048
     Dates: start: 20130125
  2. GEMCITABINE [Suspect]
     Indication: SARCOMA
     Dosage: 1000MGM2 CYCLIC
     Route: 042
     Dates: start: 20130125

REACTIONS (2)
  - Impaired healing [Recovered/Resolved]
  - Tooth infection [Not Recovered/Not Resolved]
